FAERS Safety Report 7842165-5 (Version None)
Quarter: 2011Q4

REPORT INFORMATION
  Report Type: 
  Country: None (occurrence: None)
  Receive Date: 20111019
  Receipt Date: 20111013
  Transmission Date: 20120403
  Serious: Yes (Hospitalization)
  Sender: FDA-Public Use
  Company Number: 2011SP048544

PATIENT
  Age: 15 Year
  Sex: Female

DRUGS (2)
  1. CERAZETTE (DESOGESTREL /00754001/) [Suspect]
     Indication: CONTRACEPTION
     Dosage: 75 MG;QD
     Dates: start: 20110818
  2. PROPRANOLOL [Concomitant]

REACTIONS (5)
  - EYELID PTOSIS [None]
  - HEADACHE [None]
  - SENSORY DISTURBANCE [None]
  - IRRITABILITY [None]
  - MIOSIS [None]
